FAERS Safety Report 6785217-3 (Version None)
Quarter: 2010Q2

REPORT INFORMATION
  Report Type: 
  Country: None (occurrence: None)
  Receive Date: 20100622
  Receipt Date: 20100622
  Transmission Date: 20101027
  Serious: Yes (Other)
  Sender: FDA-Public Use
  Company Number: None

PATIENT
  Age: 67 Year
  Sex: Male
  Weight: 68.0396 kg

DRUGS (1)
  1. PERIDEX [Suspect]
     Indication: PERIODONTAL DISEASE
     Dosage: CAPFULL -1-2 ML- TWICE PER DAY PO
     Route: 048
     Dates: start: 20100420, end: 20100530

REACTIONS (2)
  - SENSITIVITY OF TEETH [None]
  - TOOTH DEPOSIT [None]
